FAERS Safety Report 6811493-4 (Version None)
Quarter: 2010Q2

REPORT INFORMATION
  Report Type: 
  Country: None (occurrence: None)
  Receive Date: 20100625
  Receipt Date: 20100614
  Transmission Date: 20101027
  Serious: Yes (Life-Threatening, Hospitalization)
  Sender: FDA-Public Use
  Company Number: CRC-10-090

PATIENT
  Age: 53 Year
  Sex: Male
  Weight: 91.6266 kg

DRUGS (9)
  1. METFORMIN HCL [Suspect]
     Indication: DIABETES MELLITUS
     Dosage: 1700MG, DAILY, ORAL
     Route: 048
     Dates: start: 20091201, end: 20100311
  2. METFORMIN HCL [Suspect]
     Indication: DIABETES MELLITUS
     Dosage: 1700MG, DAILY, ORAL
     Route: 048
     Dates: start: 20100314
  3. STUDY DRUG [Suspect]
  4. GLIMEPIRIDE [Suspect]
     Indication: DIABETES MELLITUS
     Dosage: 4MG DAILY; ORAL
     Dates: start: 20091201, end: 20100311
  5. GLIMEPIRIDE [Suspect]
     Indication: DIABETES MELLITUS
     Dosage: 4MG DAILY; ORAL
     Dates: start: 20100314
  6. SIMVASTATIN [Concomitant]
  7. NORVASC [Concomitant]
  8. MULTIVITAMIN TABLETS [Concomitant]
  9. EQUATE OMEPRAZOLE [Concomitant]

REACTIONS (24)
  - ACUTE MYOCARDIAL INFARCTION [None]
  - BLOOD GLUCOSE INCREASED [None]
  - BLOOD POTASSIUM INCREASED [None]
  - BLOOD SODIUM DECREASED [None]
  - BLOOD TRIGLYCERIDES INCREASED [None]
  - CORONARY ARTERY DISEASE [None]
  - CORONARY ARTERY PERFORATION [None]
  - DILATATION VENTRICULAR [None]
  - ELECTROCARDIOGRAM P WAVE ABNORMAL [None]
  - ELECTROCARDIOGRAM QRS COMPLEX PROLONGED [None]
  - ELECTROCARDIOGRAM QRS COMPLEX SHORTENED [None]
  - FAT EMBOLISM [None]
  - HAEMATOCRIT DECREASED [None]
  - HAEMOGLOBIN DECREASED [None]
  - HIGH DENSITY LIPOPROTEIN DECREASED [None]
  - INTERNATIONAL NORMALISED RATIO INCREASED [None]
  - LEFT VENTRICULAR DYSFUNCTION [None]
  - PROTHROMBIN TIME PROLONGED [None]
  - RED BLOOD CELL COUNT DECREASED [None]
  - RIGHT VENTRICULAR DYSFUNCTION [None]
  - VENTRICULAR EXTRASYSTOLES [None]
  - VENTRICULAR FIBRILLATION [None]
  - VENTRICULAR TACHYCARDIA [None]
  - WHITE BLOOD CELL COUNT INCREASED [None]
